FAERS Safety Report 12709898 (Version 1)
Quarter: 2016Q3

REPORT INFORMATION
  Report Type: Spontaneous
  Country: US (occurrence: US)
  Receive Date: 20160902
  Receipt Date: 20160902
  Transmission Date: 20161109
  Serious: Yes (Other)
  Sender: FDA-Public Use
  Company Number: CHPA2014US014985

PATIENT

DRUGS (4)
  1. VOLTAREN [Suspect]
     Active Substance: DICLOFENAC SODIUM
     Indication: ARTHRITIS
     Dosage: UNK (VERY LITTLE, ONCE OR TWICE DAILY)
     Route: 061
  2. VOLTAREN [Suspect]
     Active Substance: DICLOFENAC SODIUM
     Indication: PAIN IN EXTREMITY
  3. VOLTAREN [Suspect]
     Active Substance: DICLOFENAC SODIUM
     Indication: MUSCULOSKELETAL STIFFNESS
  4. VOLTAREN [Suspect]
     Active Substance: DICLOFENAC SODIUM
     Indication: OFF LABEL USE
     Dosage: UNK (VERY LITTLE, ONCE OR TWICE DAILY)
     Route: 061
     Dates: start: 2010

REACTIONS (9)
  - Feeling abnormal [Recovered/Resolved]
  - Therapeutic response unexpected [Unknown]
  - Blood pressure increased [Recovered/Resolved]
  - Underdose [Unknown]
  - Incorrect dosage administered [Unknown]
  - Palpitations [Recovered/Resolved]
  - Wrong technique in product usage process [Unknown]
  - Off label use [Unknown]
  - Drug administered at inappropriate site [Unknown]

NARRATIVE: CASE EVENT DATE: 2010
